FAERS Safety Report 4514521-4 (Version None)
Quarter: 2004Q4

REPORT INFORMATION
  Report Type: 
  Country: None (occurrence: None)
  Receive Date: 20041126
  Receipt Date: 20041118
  Transmission Date: 20050328
  Serious: Yes (Other)
  Sender: FDA-Public Use
  Company Number: 200413137GDS

PATIENT
  Age: 38 Year
  Sex: Female

DRUGS (6)
  1. CANESTEN VAGINAL TABLETS (CLOTRIMAZOLE) [Suspect]
     Indication: VAGINITIS
     Dosage: 0.5 G, TOTAL DAILY, VAGINAL
     Route: 067
     Dates: start: 20030201
  2. CANESTEN VAGINAL TABLETS (CLOTRIMAZOLE) [Suspect]
     Indication: VAGINITIS
     Dosage: 0.5 G, TOTAL DAILY, VAGINAL
     Route: 067
     Dates: start: 20030501
  3. CANESTEN VAGINAL TABLETS (CLOTRIMAZOLE) [Suspect]
     Indication: VAGINITIS
     Dosage: 0.5 G, TOTAL DAILY, VAGINAL
     Route: 067
     Dates: start: 20040201
  4. CANESTEN VAGINAL TABLETS (CLOTRIMAZOLE) [Suspect]
     Indication: VAGINITIS
     Dosage: 0.5 G, TOTAL DAILY, VAGINAL
     Route: 067
     Dates: start: 20041115
  5. CEPHALOSPORINS [Concomitant]
  6. MUCOSOLVAN [Concomitant]

REACTIONS (1)
  - VAGINAL HAEMORRHAGE [None]
